FAERS Safety Report 7956282-2 (Version None)
Quarter: 2011Q4

REPORT INFORMATION
  Report Type: 
  Country: None (occurrence: None)
  Receive Date: 20111205
  Receipt Date: 20111125
  Transmission Date: 20120403
  Serious: Yes (Hospitalization)
  Sender: FDA-Public Use
  Company Number: FR-JNJFOC-20111200451

PATIENT
  Sex: Female

DRUGS (10)
  1. LORAZEPAM [Suspect]
     Indication: ANXIETY
     Route: 048
  2. TEGRETOL [Suspect]
     Indication: EPILEPSY
     Route: 048
  3. ALFUZOSIN HCL [Concomitant]
     Indication: PRODUCT USED FOR UNKNOWN INDICATION
     Route: 065
  4. POLYETHYLENE GLYCOL [Concomitant]
     Indication: PRODUCT USED FOR UNKNOWN INDICATION
     Route: 065
  5. MEMANTINE HYDROCHLORIDE [Suspect]
     Indication: DEMENTIA ALZHEIMER'S TYPE
     Route: 048
  6. PERINDOPRIL ERBUMINE [Suspect]
     Indication: HYPERTENSION
     Dosage: HALF A DAY
     Route: 048
  7. PLAVIX [Concomitant]
     Indication: PRODUCT USED FOR UNKNOWN INDICATION
     Route: 065
  8. PRAVASTATIN [Suspect]
     Indication: HYPERCHOLESTEROLAEMIA
     Route: 048
  9. ASPIRIN [Concomitant]
     Indication: PRODUCT USED FOR UNKNOWN INDICATION
     Route: 065
  10. RISPERDAL [Suspect]
     Indication: AGGRESSION
     Route: 048
     Dates: start: 20101109, end: 20101227

REACTIONS (8)
  - DEHYDRATION [None]
  - FALL [None]
  - HYPERTHERMIA [None]
  - CRANIOCEREBRAL INJURY [None]
  - HYPERNATRAEMIA [None]
  - HYPOALBUMINAEMIA [None]
  - SOMNOLENCE [None]
  - CHILLS [None]
